FAERS Safety Report 4675207-9 (Version None)
Quarter: 2005Q2

REPORT INFORMATION
  Report Type: 
  Country: None (occurrence: None)
  Receive Date: 20050526
  Receipt Date: 20050509
  Transmission Date: 20051028
  Serious: No
  Sender: FDA-Public Use
  Company Number: 11103

PATIENT
  Age: 74 Year
  Sex: Male

DRUGS (8)
  1. VINCRISTINE [Suspect]
     Indication: CENTRAL NERVOUS SYSTEM LYMPHOMA
     Route: 042
     Dates: start: 20020101
  2. METHOTREXATE [Suspect]
     Indication: CENTRAL NERVOUS SYSTEM LYMPHOMA
     Route: 042
     Dates: start: 20020101
  3. ETOPOSIDE [Suspect]
     Indication: CENTRAL NERVOUS SYSTEM LYMPHOMA
     Route: 042
     Dates: start: 20020101
  4. DOXORUBICIN [Suspect]
     Indication: CENTRAL NERVOUS SYSTEM LYMPHOMA
     Route: 042
     Dates: start: 20020101
  5. CYCLOPHOSPHAMIDE [Suspect]
     Indication: CENTRAL NERVOUS SYSTEM LYMPHOMA
     Route: 042
     Dates: start: 20020101
  6. PREDNISOLONE [Suspect]
  7. DEXAMETHASONE [Concomitant]
  8. LEUCOVORIN CALCIUM [Concomitant]

REACTIONS (1)
  - INFECTION [None]
